FAERS Safety Report 9461790 (Version 1)
Quarter: 2013Q3

REPORT INFORMATION
  Report Type: Spontaneous
  Country: US (occurrence: US)
  Receive Date: 20130816
  Receipt Date: 20130816
  Transmission Date: 20140515
  Serious: No
  Sender: FDA-Public Use
  Company Number: US-BAYER-2013-099087

PATIENT
  Age: 27 Year
  Sex: Male
  Weight: 98 kg

DRUGS (3)
  1. ALEVE CAPLET [Suspect]
     Indication: HEADACHE
     Dosage: 6 OR 7 DF IN LAST 4 HOURS
     Route: 048
     Dates: start: 20130812
  2. ALEVE CAPLET [Suspect]
     Indication: BACK PAIN
     Dosage: UNK, PRN
     Route: 048
  3. IBUPROFEN [Concomitant]
     Dosage: UNK UNK, PRN

REACTIONS (3)
  - Malaise [Not Recovered/Not Resolved]
  - Overdose [None]
  - Anxiety [Not Recovered/Not Resolved]
